FAERS Safety Report 6187637-7 (Version None)
Quarter: 2009Q2

REPORT INFORMATION
  Report Type: 
  Country: None (occurrence: None)
  Receive Date: 20090511
  Receipt Date: 20090428
  Transmission Date: 20091009
  Serious: Yes (Death, Hospitalization)
  Sender: FDA-Public Use
  Company Number: 2008AL011299

PATIENT
  Age: 81 Year
  Sex: Male

DRUGS (26)
  1. DIGOXIN [Suspect]
     Dosage: 0.125MG, DAILY, PO
     Route: 048
  2. SYNTHROID [Concomitant]
  3. LIPITOR [Concomitant]
  4. COUMADIN [Concomitant]
  5. LASIX [Concomitant]
  6. ASPIRIN [Concomitant]
  7. METOPROLOL [Concomitant]
  8. ALBUTEROL [Concomitant]
  9. SPIRIVA [Concomitant]
  10. ZOLOFT [Concomitant]
  11. BACLOFEN [Concomitant]
  12. MULTI-VITAMIN [Concomitant]
  13. SENOKOT [Concomitant]
  14. CUTRUCEL [Concomitant]
  15. PROBIOTIC [Concomitant]
  16. NASONEX [Concomitant]
  17. ALDACTONE [Concomitant]
  18. FLOMAX [Concomitant]
  19. NITROSTAT [Concomitant]
  20. CARTIA XT [Concomitant]
  21. ZEBETA [Concomitant]
  22. CALCIUM [Concomitant]
  23. LEVOTHYROXINE SODIUM [Concomitant]
  24. LISINOPRIL [Concomitant]
  25. PREDNISOLONE [Concomitant]
  26. ZYRTEC [Concomitant]

REACTIONS (13)
  - ATRIAL FIBRILLATION [None]
  - CHEST PAIN [None]
  - COUGH [None]
  - HYPOACUSIS [None]
  - MUSCLE SPASMS [None]
  - OEDEMA PERIPHERAL [None]
  - OROPHARYNGEAL PAIN [None]
  - OVERDOSE [None]
  - RASH [None]
  - RETCHING [None]
  - RHINORRHOEA [None]
  - TRANSIENT ISCHAEMIC ATTACK [None]
  - VISUAL IMPAIRMENT [None]
